FAERS Safety Report 9242145 (Version 1)
Quarter: 2013Q2

REPORT INFORMATION
  Report Type: Spontaneous
  Country: CN (occurrence: CN)
  Receive Date: 20130419
  Receipt Date: 20130419
  Transmission Date: 20140414
  Serious: Yes (Other)
  Sender: FDA-Public Use
  Company Number: CN-JNJFOC-20130405703

PATIENT
  Sex: Female

DRUGS (1)
  1. RISPERDAL [Suspect]
     Indication: SCHIZOPHRENIA
     Dosage: INITIAL DOSE WAS 1 MG PER DAY AND THE DOSE RANGE WAS 2-6 MG PER DAY
     Route: 048

REACTIONS (13)
  - Endocrine disorder [Unknown]
  - Electrocardiogram abnormal [Unknown]
  - Liver function test abnormal [Unknown]
  - Extrapyramidal disorder [Unknown]
  - Insomnia [Unknown]
  - Hypersomnia [Unknown]
  - Nausea [Unknown]
  - Vomiting [Unknown]
  - Constipation [Unknown]
  - Weight increased [Unknown]
  - Menstruation irregular [Unknown]
  - Lactation disorder [Unknown]
  - Drug ineffective [Unknown]
